FAERS Safety Report 14935376 (Version 1)
Quarter: 2018Q2

REPORT INFORMATION
  Report Type: Spontaneous
  Country: PT (occurrence: PT)
  Receive Date: 20180524
  Receipt Date: 20180524
  Transmission Date: 20180711
  Serious: Yes (Other)
  Sender: FDA-Public Use
  Company Number: PT-B.I. PHARMACEUTICALS,INC./RIDGEFIELD-2018-12-001810

PATIENT
  Age: 37 Year
  Sex: Female

DRUGS (1)
  1. VIRAMUNE [Suspect]
     Active Substance: NEVIRAPINE
     Indication: HIV INFECTION
     Route: 048
     Dates: start: 20140218, end: 20180518

REACTIONS (1)
  - Non-alcoholic steatohepatitis [Unknown]

NARRATIVE: CASE EVENT DATE: 20180105
